FAERS Safety Report 5025089-0 (Version None)
Quarter: 2006Q2

REPORT INFORMATION
  Report Type: 
  Country: None (occurrence: None)
  Receive Date: 20060608
  Receipt Date: 20060608
  Transmission Date: 20061013
  Serious: No
  Sender: FDA-Public Use
  Company Number: None

PATIENT
  Age: 64 Year

DRUGS (2)
  1. LEVAQUIN [Suspect]
     Dosage: 500 DAILY IV
     Route: 042
     Dates: start: 20060530
  2. LACTATED RINGER'S [Suspect]
     Indication: FLUID REPLACEMENT
     Dosage: 100 ML/HR EVERY 10 HOURS IV
     Dates: start: 20060530

REACTIONS (3)
  - PRURITUS [None]
  - VASODILATATION [None]
  - VEIN DISCOLOURATION [None]
